FAERS Safety Report 5946805-7 (Version None)
Quarter: 2008Q4

REPORT INFORMATION
  Report Type: 
  Country: None (occurrence: None)
  Receive Date: 20081110
  Receipt Date: 20081104
  Transmission Date: 20090506
  Serious: Yes (Other)
  Sender: FDA-Public Use
  Company Number: US-ASTRAZENECA-2008UW24667

PATIENT
  Sex: Male

DRUGS (3)
  1. PULMICORT RESPULES [Suspect]
     Indication: LUNG DISORDER
     Dosage: TWICE A DAY
     Route: 055
     Dates: start: 20070101
  2. ALBUTEROL [Suspect]
     Dosage: FOUR TIMES A DAY
     Dates: start: 20070101
  3. OXYGEN [Concomitant]

REACTIONS (2)
  - BLINDNESS [None]
  - CATARACT [None]
